FAERS Safety Report 9793208 (Version 1)
Quarter: 2013Q4

REPORT INFORMATION
  Report Type: Spontaneous
  Country: US (occurrence: None)
  Receive Date: 20131231
  Receipt Date: 20131231
  Transmission Date: 20140711
  Serious: Yes (Life-Threatening, Disabling, Other)
  Sender: FDA-Public Use
  Company Number: None

PATIENT
  Age: 52 Year
  Sex: Male
  Weight: 114.76 kg

DRUGS (13)
  1. GRALISE [Suspect]
     Indication: NEURALGIA
     Dosage: 3 ONCE
     Route: 048
     Dates: start: 20131024, end: 20131209
  2. OXYCODONE [Concomitant]
  3. OXYCOTIN [Concomitant]
  4. FLEXERIL [Concomitant]
  5. LUNESTA [Concomitant]
  6. ZYPREXA [Concomitant]
  7. VENLAFAZINE [Concomitant]
  8. ZANTAC [Concomitant]
  9. DICLOFENAC [Concomitant]
  10. XANAX [Concomitant]
  11. LASIX [Concomitant]
  12. METFORMIN [Concomitant]
  13. POTASSIUM [Concomitant]

REACTIONS (17)
  - Depression [None]
  - Panic attack [None]
  - Anger [None]
  - Aggression [None]
  - Mood altered [None]
  - Abnormal behaviour [None]
  - Memory impairment [None]
  - Fall [None]
  - Gait disturbance [None]
  - Dysarthria [None]
  - Feeling drunk [None]
  - Imprisonment [None]
  - Movement disorder [None]
  - Confusional state [None]
  - Local swelling [None]
  - Local swelling [None]
  - Erythema [None]
